FAERS Safety Report 21094118 (Version 1)
Quarter: 2022Q3

REPORT INFORMATION
  Report Type: Spontaneous
  Country: US (occurrence: None)
  Receive Date: 20220715
  Receipt Date: 20220715
  Transmission Date: 20221026
  Serious: No
  Sender: FDA-Public Use
  Company Number: None

PATIENT
  Age: 44 Year
  Sex: Female

DRUGS (1)
  1. HUMIRA [Suspect]
     Active Substance: ADALIMUMAB
     Indication: Psoriasis
     Dosage: 40MG EVERY 2 WEEK SUBCUTANEOUS?
     Route: 058
     Dates: start: 202204

REACTIONS (3)
  - Injection site erythema [None]
  - Injection site pain [None]
  - Menstruation irregular [None]

NARRATIVE: CASE EVENT DATE: 20220612
